FAERS Safety Report 5254060-9 (Version None)
Quarter: 2007Q1

REPORT INFORMATION
  Report Type: 
  Country: None (occurrence: None)
  Receive Date: 20070302
  Receipt Date: 20070220
  Transmission Date: 20070707
  Serious: Yes (Other)
  Sender: FDA-Public Use
  Company Number: JP-PFIZER INC-2007015407

PATIENT
  Sex: Male

DRUGS (2)
  1. ZOLOFT [Suspect]
     Indication: HYPERVENTILATION
     Dosage: DAILY DOSE:50MG
     Route: 048
     Dates: start: 20061225, end: 20070201
  2. CERCINE [Concomitant]

REACTIONS (9)
  - ANOREXIA [None]
  - BLOOD LACTATE DEHYDROGENASE INCREASED [None]
  - DYSGEUSIA [None]
  - INSOMNIA [None]
  - LIVER FUNCTION TEST ABNORMAL [None]
  - MALAISE [None]
  - NAUSEA [None]
  - PALPITATIONS [None]
  - WEIGHT DECREASED [None]
